FAERS Safety Report 14531940 (Version 1)
Quarter: 2018Q1

REPORT INFORMATION
  Report Type: Spontaneous
  Country: FR (occurrence: FR)
  Receive Date: 20180214
  Receipt Date: 20180214
  Transmission Date: 20180509
  Serious: Yes (Death, Hospitalization)
  Sender: FDA-Public Use
  Company Number: FR-TEVA-2018-FR-856127

PATIENT
  Age: 70 Year
  Sex: Male

DRUGS (15)
  1. ELIQUIS [Suspect]
     Active Substance: APIXABAN
     Indication: CARDIAC FLUTTER
     Dosage: 10 MILLIGRAM DAILY;
     Route: 048
     Dates: start: 20171006, end: 20171020
  2. PREDNISOLONE. [Suspect]
     Active Substance: PREDNISOLONE
     Indication: HYPERTENSION
     Route: 048
     Dates: end: 20171020
  3. VENTOLINE [Suspect]
     Active Substance: ALBUTEROL
     Indication: PRODUCT USED FOR UNKNOWN INDICATION
     Dosage: 3 DOSAGE FORMS DAILY;
     Route: 055
     Dates: end: 20171020
  4. LANTUS [Suspect]
     Active Substance: INSULIN GLARGINE
     Indication: KETOSIS-PRONE DIABETES MELLITUS
     Dosage: 16 IU (INTERNATIONAL UNIT) DAILY;
     Route: 058
     Dates: end: 20171020
  5. DEROXAT [Suspect]
     Active Substance: PAROXETINE HYDROCHLORIDE
     Indication: PRODUCT USED FOR UNKNOWN INDICATION
     Route: 048
     Dates: start: 20171006, end: 20171020
  6. PERINDOPRIL [Suspect]
     Active Substance: PERINDOPRIL
     Indication: HYPERTENSION
     Dosage: 2.5 MILLIGRAM DAILY;
     Route: 048
     Dates: end: 20171020
  7. BISOPROLOL (FUMARATE ACIDE DE) [Suspect]
     Active Substance: BISOPROLOL FUMARATE
     Indication: HYPERTENSION
     Dosage: 10 MILLIGRAM DAILY;
     Route: 048
     Dates: end: 20171020
  8. ALPRAZOLAM. [Suspect]
     Active Substance: ALPRAZOLAM
     Indication: PRODUCT USED FOR UNKNOWN INDICATION
     Dosage: .75 MILLIGRAM DAILY;
     Route: 048
     Dates: end: 20171020
  9. BACTRIM [Suspect]
     Active Substance: SULFAMETHOXAZOLE\TRIMETHOPRIM
     Indication: PRODUCT USED FOR UNKNOWN INDICATION
     Dosage: .5 DOSAGE FORMS DAILY;
     Route: 048
     Dates: end: 20171020
  10. ONDANSETRON ACCORD 2 MG/ML, SOLUTION INJECTABLE [Suspect]
     Active Substance: ONDANSETRON HYDROCHLORIDE
     Indication: PREMEDICATION
     Dosage: 16 MILLIGRAM DAILY;
     Dates: start: 20171019, end: 20171019
  11. ENDOXAN [Suspect]
     Active Substance: CYCLOPHOSPHAMIDE
     Indication: INTERSTITIAL LUNG DISEASE
     Dosage: 500 MILLIGRAM DAILY;
     Dates: start: 20171019, end: 20171019
  12. SKENAN [Suspect]
     Active Substance: MORPHINE SULFATE
     Indication: PAIN
     Dosage: 20 MILLIGRAM DAILY;
     Route: 048
     Dates: end: 20171020
  13. MESNA EG [Suspect]
     Active Substance: MESNA
     Indication: PREMEDICATION
     Dosage: 1188 MILLIGRAM DAILY;
     Dates: start: 20171019, end: 20171019
  14. ALFUZOSINE (CHLORHYDRATE D) [Suspect]
     Active Substance: ALFUZOSIN HYDROCHLORIDE
     Indication: BENIGN PROSTATIC HYPERPLASIA
     Dosage: 10 MILLIGRAM DAILY;
     Route: 048
     Dates: end: 20171020
  15. NOVORAPID [Suspect]
     Active Substance: INSULIN ASPART
     Indication: KETOSIS-PRONE DIABETES MELLITUS
     Route: 058
     Dates: end: 20171020

REACTIONS (1)
  - Cardio-respiratory arrest [Fatal]

NARRATIVE: CASE EVENT DATE: 20171020
